FAERS Safety Report 19946342 (Version 5)
Quarter: 2022Q3

REPORT INFORMATION
  Report Type: Report from Study
  Country: CA (occurrence: CA)
  Receive Date: 20211012
  Receipt Date: 20220903
  Transmission Date: 20221027
  Serious: Yes (Other)
  Sender: FDA-Public Use
  Company Number: CA-TAKEDA-2021TUS025835

PATIENT
  Age: 72 Year
  Sex: Female

DRUGS (7)
  1. VEDOLIZUMAB [Suspect]
     Active Substance: VEDOLIZUMAB
     Indication: Crohn^s disease
     Dosage: 300 MILLIGRAM
     Route: 042
     Dates: start: 20210406
  2. VEDOLIZUMAB [Suspect]
     Active Substance: VEDOLIZUMAB
     Dosage: 300 MILLIGRAM
     Route: 042
  3. VEDOLIZUMAB [Suspect]
     Active Substance: VEDOLIZUMAB
     Dosage: 300 MILLIGRAM
     Route: 042
  4. VEDOLIZUMAB [Suspect]
     Active Substance: VEDOLIZUMAB
     Dosage: 300 MILLIGRAM
     Route: 042
  5. VEDOLIZUMAB [Suspect]
     Active Substance: VEDOLIZUMAB
     Dosage: 300 MILLIGRAM
     Route: 042
  6. VEDOLIZUMAB [Suspect]
     Active Substance: VEDOLIZUMAB
     Dosage: 300 MILLIGRAM
     Route: 042
  7. PREDNISONE [Concomitant]
     Active Substance: PREDNISONE
     Dosage: UNK UNK, QD

REACTIONS (20)
  - Intracranial aneurysm [Unknown]
  - Nephrolithiasis [Unknown]
  - Diarrhoea [Unknown]
  - Skin exfoliation [Unknown]
  - Defaecation urgency [Unknown]
  - Anal hypoaesthesia [Unknown]
  - Sacral pain [Unknown]
  - Hypoacusis [Unknown]
  - Musculoskeletal pain [Unknown]
  - Frequent bowel movements [Unknown]
  - Osteoarthritis [Unknown]
  - Anaemia [Unknown]
  - Hand fracture [Unknown]
  - Vulvovaginal pain [Unknown]
  - Faeces discoloured [Unknown]
  - Perineal pain [Unknown]
  - Urinary tract infection [Unknown]
  - Abdominal pain [Unknown]
  - Headache [Unknown]
  - Pain in extremity [Unknown]
